FAERS Safety Report 22210553 (Version 2)
Quarter: 2023Q2

REPORT INFORMATION
  Report Type: Spontaneous
  Country: BR (occurrence: BR)
  Receive Date: 20230414
  Receipt Date: 20230419
  Transmission Date: 20230722
  Serious: Yes (Other)
  Sender: FDA-Public Use
  Company Number: BR-BAXTER-2023BAX018465

PATIENT
  Age: 100 Year
  Sex: Female
  Weight: 64.7 kg

DRUGS (2)
  1. GENUXAL [Suspect]
     Active Substance: CYCLOPHOSPHAMIDE
     Indication: Breast cancer female
     Dosage: (1 G AMPOULE) 972 MG, AS A PART OF NE, AC-T PACLI 175 PROTOCOL, C1D1 CYCLE
     Route: 042
     Dates: start: 20230116
  2. DOXORUBICIN HYDROCHLORIDE [Suspect]
     Active Substance: DOXORUBICIN HYDROCHLORIDE
     Indication: Breast cancer
     Dosage: AS A PART OF  NE, AC-T PACLI 175 PROTOCOL, C1D1 CYCLE
     Route: 065

REACTIONS (4)
  - Neck pain [Recovered/Resolved]
  - Erythema [Recovered/Resolved]
  - Nausea [Recovered/Resolved]
  - Vomiting [Recovered/Resolved]

NARRATIVE: CASE EVENT DATE: 20230116
